FAERS Safety Report 12180235 (Version 1)
Quarter: 2016Q1

REPORT INFORMATION
  Report Type: Spontaneous
  Country: US (occurrence: US)
  Receive Date: 20160315
  Receipt Date: 20160315
  Transmission Date: 20160526
  Serious: No
  Sender: FDA-Public Use
  Company Number: US-009507513-1603USA004973

PATIENT
  Sex: Female

DRUGS (1)
  1. GRASTEK [Suspect]
     Active Substance: PHLEUM PRATENSE POLLEN
     Dosage: UNK; TABLET 2800 BIOEQUIVALENT ALLERGY UNIT (BAU)
     Route: 048

REACTIONS (2)
  - Enlarged uvula [Recovered/Resolved]
  - Pharyngeal erythema [Recovered/Resolved]

NARRATIVE: CASE EVENT DATE: 2015
